FAERS Safety Report 21509209 (Version 1)
Quarter: 2022Q4

REPORT INFORMATION
  Report Type: Spontaneous
  Country: US (occurrence: US)
  Receive Date: 20221026
  Receipt Date: 20221026
  Transmission Date: 20230112
  Serious: No
  Sender: FDA-Public Use
  Company Number: US-BRISTOL-MYERS SQUIBB COMPANY-2022-127368

PATIENT
  Age: 69 Year
  Sex: Male
  Weight: 86.63 kg

DRUGS (1)
  1. REVLIMID [Suspect]
     Active Substance: LENALIDOMIDE
     Indication: Plasma cell myeloma
     Dosage: 21 D AND 7 DAY OFF
     Route: 048

REACTIONS (3)
  - Illness [Unknown]
  - Asthenia [Unknown]
  - Sluggishness [Unknown]
